FAERS Safety Report 23208126 (Version 1)
Quarter: 2023Q4

REPORT INFORMATION
  Report Type: Spontaneous
  Country: FR (occurrence: FR)
  Receive Date: 20231121
  Receipt Date: 20231121
  Transmission Date: 20240110
  Serious: Yes (Hospitalization)
  Sender: FDA-Public Use
  Company Number: FR-ENDO PHARMACEUTICALS INC-2023-005839

PATIENT
  Age: 42 Year
  Sex: Male
  Weight: 90 kg

DRUGS (3)
  1. TESTOSTERONE [Suspect]
     Active Substance: TESTOSTERONE
     Indication: Azoospermia
     Dosage: UNK UNKNOWN, UNKNOWN
     Route: 065
     Dates: start: 2022
  2. ERYTHROPOIETIN [Suspect]
     Active Substance: ERYTHROPOIETIN
     Indication: Performance enhancing product use
     Dosage: UNK UNKNOWN, UNKNOWN
     Route: 065
  3. KENACORT [Suspect]
     Active Substance: TRIAMCINOLONE
     Indication: Performance enhancing product use
     Dosage: 1 DOSAGE FORM, A (YEARS)
     Route: 065
     Dates: end: 202306

REACTIONS (3)
  - Peripheral ischaemia [Recovered/Resolved with Sequelae]
  - Haematocrit increased [Recovered/Resolved]
  - Intentional product misuse [Recovered/Resolved]

NARRATIVE: CASE EVENT DATE: 20231017
